FAERS Safety Report 25897629 (Version 1)
Quarter: 2025Q4

REPORT INFORMATION
  Report Type: Report from Study
  Country: US (occurrence: US)
  Receive Date: 20251008
  Receipt Date: 20251008
  Transmission Date: 20260117
  Serious: Yes (Other)
  Sender: ABBVIE
  Company Number: US-ABBVIE-6492528

PATIENT
  Age: 59 Year
  Sex: Male

DRUGS (3)
  1. SKYRIZI [Suspect]
     Active Substance: RISANKIZUMAB-RZAA
     Indication: Psoriasis
     Dosage: TIME INTERVAL: TOTAL: WEEK 0, STRENGTH: 150MG/ML
     Route: 058
     Dates: start: 20250604, end: 20250604
  2. SKYRIZI [Suspect]
     Active Substance: RISANKIZUMAB-RZAA
     Dosage: TIME INTERVAL: TOTAL: WEEK 4, STRENGTH: 150MG/ML
     Route: 058
     Dates: start: 20250702, end: 20250702
  3. SKYRIZI [Suspect]
     Active Substance: RISANKIZUMAB-RZAA
     Dosage: STRENGTH: 150MG/ML
     Route: 058
     Dates: start: 20251003

REACTIONS (1)
  - Surgery [Unknown]

NARRATIVE: CASE EVENT DATE: 20250101
